FAERS Safety Report 8423866-7 (Version None)
Quarter: 2012Q2

REPORT INFORMATION
  Report Type: 
  Country: None (occurrence: None)
  Receive Date: 20120608
  Receipt Date: 20120310
  Transmission Date: 20120825
  Serious: No
  Sender: FDA-Public Use
  Company Number: US-ASTRAZENECA-2011SE06669

PATIENT
  Age: 72 Year
  Sex: Female

DRUGS (3)
  1. ATACAND HCT [Suspect]
     Route: 048
  2. ATACAND [Suspect]
     Route: 048
  3. ATACAND [Suspect]
     Dosage: GENERIC.
     Route: 048

REACTIONS (3)
  - HEADACHE [None]
  - BLOOD PRESSURE INCREASED [None]
  - MALAISE [None]
